FAERS Safety Report 9252708 (Version 1)
Quarter: 2013Q2

REPORT INFORMATION
  Report Type: Spontaneous
  Country: JP (occurrence: JP)
  Receive Date: 20130424
  Receipt Date: 20130424
  Transmission Date: 20140414
  Serious: Yes (Other)
  Sender: FDA-Public Use
  Company Number: JP-UCBSA-083923

PATIENT
  Age: 64 Year
  Sex: Female

DRUGS (2)
  1. E KEPPRA [Suspect]
     Indication: EPILEPSY
     Route: 048
     Dates: start: 20130220, end: 20130410
  2. DEPAKENE [Concomitant]
     Route: 048

REACTIONS (7)
  - Convulsion [Unknown]
  - Tremor [Unknown]
  - Gamma-glutamyltransferase increased [Unknown]
  - High density lipoprotein increased [Unknown]
  - Back pain [Unknown]
  - Somnolence [Unknown]
  - Drug ineffective [Unknown]
